FAERS Safety Report 8996128 (Version 1)
Quarter: 2013Q1

REPORT INFORMATION
  Report Type: Spontaneous
  Country: US (occurrence: US)
  Receive Date: 20130103
  Receipt Date: 20130103
  Transmission Date: 20140127
  Serious: No
  Sender: FDA-Public Use
  Company Number: US-PFIZER INC-2012332612

PATIENT
  Age: 83 Year
  Sex: Male
  Weight: 72.56 kg

DRUGS (3)
  1. TOVIAZ [Suspect]
     Indication: BLADDER SPASM
     Dosage: 4 MG, DAILY
     Route: 048
     Dates: start: 201212
  2. TOVIAZ [Suspect]
     Dosage: 4 MG, 2X/DAY
     Dates: start: 20121227
  3. SYNTHROID [Concomitant]
     Indication: THYROID DISORDER
     Dosage: 50 UG, DAILY

REACTIONS (2)
  - Wrong technique in drug usage process [Unknown]
  - Drug effect incomplete [Unknown]
